FAERS Safety Report 4664256-2 (Version None)
Quarter: 2005Q2

REPORT INFORMATION
  Report Type: 
  Country: None (occurrence: None)
  Receive Date: 20050516
  Receipt Date: 20050516
  Transmission Date: 20051028
  Serious: Yes (Hospitalization)
  Sender: FDA-Public Use
  Company Number: None

PATIENT
  Age: 28 Year
  Sex: Female
  Weight: 95 kg

DRUGS (8)
  1. PRIALT [Suspect]
     Indication: PAIN
     Dosage: 1.2 MCG/DAY IT; 0.162 MCG 1 DAY
     Route: 037
     Dates: start: 20050502, end: 20050506
  2. PRIALT [Suspect]
     Indication: PAIN
     Dosage: 1.2 MCG/DAY IT; 0.162 MCG 1 DAY
     Route: 037
     Dates: start: 20050506, end: 20050508
  3. . [Concomitant]
  4. LASIX [Concomitant]
  5. NYSTATIN [Concomitant]
  6. VANCOMYCIN [Concomitant]
  7. PRIMARIN [Concomitant]
  8. TPN [Concomitant]

REACTIONS (2)
  - LOSS OF CONSCIOUSNESS [None]
  - SOMNOLENCE [None]
